FAERS Safety Report 6982457-5 (Version None)
Quarter: 2010Q3

REPORT INFORMATION
  Report Type: 
  Country: None (occurrence: None)
  Receive Date: 20100914
  Receipt Date: 20100125
  Transmission Date: 20110219
  Serious: No
  Sender: FDA-Public Use
  Company Number: US-PFIZER INC-2010011162

PATIENT
  Sex: Male
  Weight: 74.8 kg

DRUGS (6)
  1. LYRICA [Suspect]
     Indication: SCIATIC NERVE NEUROPATHY
     Dosage: 50 MG, 3X/DAY
     Route: 048
     Dates: start: 20100122, end: 20100125
  2. FENTANYL [Concomitant]
     Indication: SCIATIC NERVE NEUROPATHY
     Dosage: 12.5 UG, UNK
  3. LIPITOR [Concomitant]
     Indication: BLOOD CHOLESTEROL INCREASED
     Dosage: 10 MG, UNK
     Route: 048
  4. IBUPROFEN [Concomitant]
     Indication: PAIN
     Dosage: 200 MG, UNK
  5. OMEPRAZOLE [Concomitant]
     Indication: GASTROOESOPHAGEAL REFLUX DISEASE
     Dosage: UNK
  6. NEURONTIN [Concomitant]
     Indication: SCIATIC NERVE NEUROPATHY
     Dosage: 300 MG, UNK

REACTIONS (1)
  - INSOMNIA [None]
